FAERS Safety Report 7888505-2 (Version None)
Quarter: 2011Q4

REPORT INFORMATION
  Report Type: 
  Country: None (occurrence: None)
  Receive Date: 20111103
  Receipt Date: 20111025
  Transmission Date: 20120403
  Serious: Yes (Hospitalization)
  Sender: FDA-Public Use
  Company Number: AU-B.I. PHARMACEUTICALS,INC./RIDGEFIELD-2011-AU-01576AU

PATIENT
  Sex: Male
  Weight: 69 kg

DRUGS (5)
  1. PRADAXA [Suspect]
     Indication: ATRIAL FIBRILLATION
     Dosage: 220 MG
     Dates: start: 20110725, end: 20110903
  2. MONODUR [Concomitant]
  3. ZOCOR [Concomitant]
  4. LANSOPRAZOLE [Concomitant]
  5. PERINDOPRIL ERBUMINE [Concomitant]

REACTIONS (1)
  - MELAENA [None]
